FAERS Safety Report 9849262 (Version 2)
Quarter: 2014Q1

REPORT INFORMATION
  Report Type: Spontaneous
  Country: US (occurrence: US)
  Receive Date: 20140128
  Receipt Date: 20140128
  Transmission Date: 20141002
  Serious: Yes (Other)
  Sender: FDA-Public Use
  Company Number: US-ABBVIE-13P-163-1173893-00

PATIENT
  Sex: Male
  Weight: 79.45 kg

DRUGS (1)
  1. LUPRON DEPOT [Suspect]
     Indication: PROSTATE CANCER
     Dates: start: 200608, end: 200803

REACTIONS (2)
  - Prostate cancer recurrent [Unknown]
  - Prostatic specific antigen increased [Not Recovered/Not Resolved]
